FAERS Safety Report 20253222 (Version 3)
Quarter: 2022Q2

REPORT INFORMATION
  Report Type: Spontaneous
  Country: NL (occurrence: NL)
  Receive Date: 20211229
  Receipt Date: 20220620
  Transmission Date: 20220721
  Serious: Yes (Hospitalization, Other)
  Sender: FDA-Public Use
  Company Number: NL-Merck Healthcare KGaA-9162330

PATIENT
  Age: 71 Year
  Sex: Female
  Weight: 61 kg

DRUGS (10)
  1. APIXABAN [Suspect]
     Active Substance: APIXABAN
     Indication: Pulmonary embolism
     Dosage: 5 MILLIGRAM
     Route: 048
     Dates: start: 20200323, end: 20200512
  2. APIXABAN [Suspect]
     Active Substance: APIXABAN
     Dosage: 10 MILLIGRAM, ONCE A DAY
     Route: 048
     Dates: start: 20200323, end: 20200512
  3. CLOPIDOGREL [Suspect]
     Active Substance: CLOPIDOGREL BISULFATE
     Indication: Cerebrovascular accident
     Dosage: 75 MILLIGRAM, ONCE A DAY
     Route: 048
     Dates: start: 20191223, end: 20200630
  4. PANTOPRAZOLE [Suspect]
     Active Substance: PANTOPRAZOLE
     Indication: Dyspepsia
     Dosage: 40 MILLIGRAM, ONCE A DAY
     Route: 048
     Dates: start: 20200302, end: 20200330
  5. PANTOPRAZOLE [Suspect]
     Active Substance: PANTOPRAZOLE
     Dosage: 20 MILLIGRAM, ONCE A DAY
     Route: 048
     Dates: start: 20200918
  6. CISPLATIN [Suspect]
     Active Substance: CISPLATIN
     Indication: Non-small cell lung cancer stage III
     Dosage: 80 MILLIGRAM
     Route: 042
     Dates: start: 20200127, end: 20200302
  7. ETOPOSIDE [Suspect]
     Active Substance: ETOPOSIDE
     Indication: Non-small cell lung cancer stage III
     Dosage: 80 MILLIGRAM
     Route: 042
     Dates: start: 20200127, end: 20200228
  8. BINTRAFUSP ALFA [Suspect]
     Active Substance: BINTRAFUSP ALFA
     Indication: Non-small cell lung cancer stage III
     Dosage: UNK (Q2WUNK)
     Route: 042
     Dates: start: 20200127, end: 20200423
  9. BINTRAFUSP ALFA [Suspect]
     Active Substance: BINTRAFUSP ALFA
     Dosage: UNK (Q2WUNK)
     Route: 042
     Dates: start: 20200520, end: 20200813
  10. BINTRAFUSP ALFA [Suspect]
     Active Substance: BINTRAFUSP ALFA
     Dosage: UNK (Q2WUNK)
     Route: 042
     Dates: start: 20201007

REACTIONS (2)
  - Gastrointestinal vascular malformation haemorrhagic [Recovered/Resolved]
  - Anaemia [Recovered/Resolved]

NARRATIVE: CASE EVENT DATE: 20200210
